FAERS Safety Report 18949005 (Version 1)
Quarter: 2021Q1

REPORT INFORMATION
  Report Type: Report from Study
  Country: US (occurrence: US)
  Receive Date: 20210227
  Receipt Date: 20210227
  Transmission Date: 20210420
  Serious: Yes (Other)
  Sender: FDA-Public Use
  Company Number: NVSC2021US041679

PATIENT
  Age: 50 Year

DRUGS (1)
  1. KYMRIAH [Suspect]
     Active Substance: TISAGENLECLEUCEL
     Indication: LYMPHOMA
     Dosage: UNK (3X10E8)
     Route: 065

REACTIONS (3)
  - Cytokine release syndrome [Unknown]
  - Condition aggravated [Unknown]
  - Lymphoma [Unknown]
